FAERS Safety Report 8617651-0 (Version None)
Quarter: 2012Q3

REPORT INFORMATION
  Report Type: 
  Country: None (occurrence: None)
  Receive Date: 20120824
  Receipt Date: 20120206
  Transmission Date: 20120928
  Serious: No
  Sender: FDA-Public Use
  Company Number: US-ASTRAZENECA-2011SE76782

PATIENT
  Age: 78 Year
  Sex: Female
  Weight: 65.8 kg

DRUGS (16)
  1. SUPER B COMPLEX [Concomitant]
  2. AMLOPINE [Concomitant]
  3. DIGOXIN [Concomitant]
  4. FISH OIL [Concomitant]
  5. MAGNESIUM [Concomitant]
  6. ASPIRIN [Concomitant]
  7. COQ10 [Concomitant]
  8. SPIRIVA [Concomitant]
  9. SIMVASTATIN [Concomitant]
  10. ASCORBIC ACID [Concomitant]
  11. VITAMIN E [Concomitant]
  12. SYMBICORT [Suspect]
     Indication: CHRONIC OBSTRUCTIVE PULMONARY DISEASE
     Dosage: 160/4.5 MCG, 2 PUFFS BID
     Route: 055
  13. STIRONOLACTONE [Concomitant]
  14. FLECAINIDE ACETATE [Concomitant]
  15. VITAMIN TAB [Concomitant]
  16. CALCIUM [Concomitant]

REACTIONS (2)
  - INTENTIONAL DRUG MISUSE [None]
  - INCORRECT DOSE ADMINISTERED BY DEVICE [None]
